FAERS Safety Report 13160513 (Version 1)
Quarter: 2017Q1

REPORT INFORMATION
  Report Type: Spontaneous
  Country: US (occurrence: US)
  Receive Date: 20170128
  Receipt Date: 20170128
  Transmission Date: 20170428
  Serious: No
  Sender: FDA-Public Use
  Company Number: US-009507513-1701USA001877

PATIENT
  Age: 27 Year
  Sex: Female
  Weight: 54.42 kg

DRUGS (1)
  1. NEXPLANON [Suspect]
     Active Substance: ETONOGESTREL
     Indication: CONTRACEPTION
     Dosage: 1 IMPLANT, EVERY 3 YEARS (CYCLICAL)
     Route: 059
     Dates: start: 20130618

REACTIONS (11)
  - Blood iron decreased [Unknown]
  - Breast tenderness [Unknown]
  - Migraine with aura [Unknown]
  - Feeling cold [Unknown]
  - Menorrhagia [Unknown]
  - Fatigue [Unknown]
  - Hot flush [Unknown]
  - Emotional disorder [Unknown]
  - Incorrect drug administration duration [Not Recovered/Not Resolved]
  - Amenorrhoea [Unknown]
  - Breast swelling [Unknown]

NARRATIVE: CASE EVENT DATE: 2015
